FAERS Safety Report 6764920-5 (Version None)
Quarter: 2010Q2

REPORT INFORMATION
  Report Type: 
  Country: None (occurrence: None)
  Receive Date: 20100610
  Receipt Date: 20100601
  Transmission Date: 20101027
  Serious: Yes (Hospitalization)
  Sender: FDA-Public Use
  Company Number: GB-AMGEN-QUU413410

PATIENT
  Age: 23 Year
  Sex: Female

DRUGS (2)
  1. ENBREL [Suspect]
     Indication: JUVENILE ARTHRITIS
     Route: 058
     Dates: start: 20050401, end: 20100422
  2. DIHYDROCODEINE BITARTRATE INJ [Concomitant]
     Dosage: UNKNOWN

REACTIONS (3)
  - CONTUSION [None]
  - IDIOPATHIC THROMBOCYTOPENIC PURPURA [None]
  - PURPURA [None]
